FAERS Safety Report 10331256 (Version 1)
Quarter: 2014Q3

REPORT INFORMATION
  Report Type: Spontaneous
  Country: US (occurrence: None)
  Receive Date: 20140718
  Receipt Date: 20140718
  Transmission Date: 20150326
  Serious: Yes (Life-Threatening, Hospitalization)
  Sender: FDA-Public Use
  Company Number: 140257

PATIENT
  Age: 9 Year
  Sex: Male

DRUGS (1)
  1. GOLYTELY [Suspect]
     Active Substance: POLYETHYLENE GLYCOL 3350\POTASSIUM CHLORIDE\SODIUM BICARBONATE\SODIUM CHLORIDE\SODIUM SULFATE ANHYDROUS
     Indication: OFF LABEL USE
     Dosage: 283 ML 1X NG

REACTIONS (11)
  - Breath sounds abnormal [None]
  - Respiratory rate increased [None]
  - Pneumonia aspiration [None]
  - Heart rate increased [None]
  - Cough [None]
  - Retching [None]
  - Vomiting [None]
  - Oxygen saturation decreased [None]
  - Incorrect route of drug administration [None]
  - Blood pressure decreased [None]
  - Infusion related reaction [None]
